FAERS Safety Report 11880076 (Version 1)
Quarter: 2015Q4

REPORT INFORMATION
  Report Type: Spontaneous
  Country: TH (occurrence: TH)
  Receive Date: 20151230
  Receipt Date: 20151230
  Transmission Date: 20160305
  Serious: Yes (Other)
  Sender: FDA-Public Use
  Company Number: TH-MYLANLABS-2015M1047560

PATIENT

DRUGS (5)
  1. CEFTRIAXONE. [Suspect]
     Active Substance: CEFTRIAXONE
     Indication: PLASMODIUM FALCIPARUM INFECTION
     Dosage: 2000 MG EVERY 12 HOUR
     Route: 065
  2. ARTESUNATE [Concomitant]
     Active Substance: ARTESUNATE
     Indication: PLASMODIUM FALCIPARUM INFECTION
     Dosage: 120MG (2.4 MG/KG) AT 0, 12, 24 AND 48 HOURS. SEVEN DOSES (TOTAL DOSE RECEIVED 840MG).
     Route: 042
  3. DEXAMETHASONE. [Suspect]
     Active Substance: DEXAMETHASONE
     Indication: AUTOIMMUNE HAEMOLYTIC ANAEMIA
     Dosage: 5MG 6-HOURLY
     Route: 065
  4. A FANTRINE [Suspect]
     Active Substance: ARTEMETHER\LUMEFANTRINE
     Indication: PRODUCT USED FOR UNKNOWN INDICATION
     Dosage: 80/480 MG THREE DOSES (TOTAL DOSE OF ARTEMETHER 240MG, AND LUMEFANTRINE 1440MG)
  5. AMIKACIN [Suspect]
     Active Substance: AMIKACIN
     Indication: ANTIBIOTIC PROPHYLAXIS
     Dosage: 500MG (7.5 MG/KG) 8-HOURLY
     Route: 065

REACTIONS (4)
  - Haemolytic anaemia [Unknown]
  - Mucormycosis [Recovering/Resolving]
  - Renal impairment [Recovering/Resolving]
  - Confusional state [None]
